FAERS Safety Report 8085678-6 (Version None)
Quarter: 2012Q1

REPORT INFORMATION
  Report Type: 
  Country: None (occurrence: None)
  Receive Date: 20120128
  Receipt Date: 20110405
  Transmission Date: 20120608
  Serious: No
  Sender: FDA-Public Use
  Company Number: US-ABBOTT-11P-163-0716572-00

PATIENT
  Sex: Male
  Weight: 111.23 kg

DRUGS (14)
  1. HUMIRA [Suspect]
     Indication: RHEUMATOID ARTHRITIS
     Route: 058
     Dates: start: 20100901, end: 20101001
  2. PROSCAR [Concomitant]
     Indication: PROSTATOMEGALY
     Route: 048
     Dates: end: 20100901
  3. COZAAR [Concomitant]
     Indication: BLOOD PRESSURE
     Route: 048
  4. INDOCIN [Concomitant]
     Indication: OSTEOARTHRITIS
     Route: 048
  5. ALLOPURINOL [Concomitant]
     Indication: GOUT
     Route: 048
  6. TOPROL-XL [Concomitant]
     Indication: BLOOD PRESSURE
     Dosage: 0.5 TABLET
     Route: 048
  7. FOLIC ACID [Concomitant]
     Indication: VITAMIN SUPPLEMENTATION
     Route: 048
  8. FLOMAX [Concomitant]
     Indication: PROSTATOMEGALY
     Dosage: UNKNOWN STRENGTH
     Route: 048
  9. LIPITOR [Concomitant]
     Indication: BLOOD CHOLESTEROL INCREASED
     Route: 048
  10. HUMIRA [Suspect]
     Indication: OSTEOARTHRITIS
     Route: 058
  11. JANUVIA [Concomitant]
     Indication: DIABETES MELLITUS
     Route: 048
  12. GLYBURIDE [Concomitant]
     Indication: DIABETES MELLITUS
     Dosage: UNKNOWN STRENGTH
     Route: 048
  13. NIFEDIPINE [Concomitant]
     Indication: BLOOD PRESSURE
     Route: 048
  14. FISH OIL [Concomitant]
     Indication: VITAMIN SUPPLEMENTATION
     Route: 048

REACTIONS (5)
  - BLOOD GLUCOSE INCREASED [None]
  - GLYCOSYLATED HAEMOGLOBIN INCREASED [None]
  - DRUG INEFFECTIVE [None]
  - ARTHRALGIA [None]
  - PAIN [None]
